FAERS Safety Report 18597266 (Version 1)
Quarter: 2020Q4

REPORT INFORMATION
  Report Type: Spontaneous
  Country: US (occurrence: US)
  Receive Date: 20201209
  Receipt Date: 20201209
  Transmission Date: 20210114
  Serious: No
  Sender: FDA-Public Use
  Company Number: US-IBSA PHARMA INC.-2020IBS000247

PATIENT
  Age: 58 Year
  Sex: Female

DRUGS (5)
  1. TIROSINT [Suspect]
     Active Substance: LEVOTHYROXINE SODIUM
     Indication: AUTOIMMUNE THYROIDITIS
     Dosage: 88MCG DAILY
     Route: 048
     Dates: start: 201910, end: 2019
  2. VALIUM [Concomitant]
     Active Substance: DIAZEPAM
     Indication: PRODUCT USED FOR UNKNOWN INDICATION
     Dosage: AS NEEDED
  3. TIROSINT [Suspect]
     Active Substance: LEVOTHYROXINE SODIUM
     Dosage: ALTERNATING 100MCG 5 DAYS PER WEEK AND 88MCG 2 DAYS PER WEEK
     Route: 048
     Dates: start: 2019
  4. TIROSINT [Suspect]
     Active Substance: LEVOTHYROXINE SODIUM
     Indication: AUTOIMMUNE THYROIDITIS
     Dosage: 100MCG DAILY
     Route: 048
     Dates: start: 2019, end: 2019
  5. TIROSINT [Suspect]
     Active Substance: LEVOTHYROXINE SODIUM
     Dosage: ALTERNATING 100MCG 5 DAYS PER WEEK AND 88MCG 2 DAYS PER WEEK
     Route: 048
     Dates: start: 2019

REACTIONS (12)
  - Gait disturbance [Recovered/Resolved]
  - Malaise [Recovered/Resolved]
  - Pain [Recovered/Resolved]
  - Vertigo [Recovered/Resolved]
  - Drug level above therapeutic [None]
  - Vertigo [None]
  - Dizziness [None]
  - Back pain [Recovered/Resolved]
  - Head discomfort [Recovered/Resolved]
  - Arthralgia [Recovered/Resolved]
  - Drug level below therapeutic [Unknown]
  - Feeling abnormal [Recovered/Resolved]

NARRATIVE: CASE EVENT DATE: 2019
